FAERS Safety Report 6282096-8 (Version None)
Quarter: 2009Q3

REPORT INFORMATION
  Report Type: 
  Country: None (occurrence: None)
  Receive Date: 20090724
  Receipt Date: 20090716
  Transmission Date: 20100115
  Serious: Yes (Other)
  Sender: FDA-Public Use
  Company Number: US-SP-2009-01678

PATIENT
  Age: 5 Year
  Sex: Male

DRUGS (5)
  1. IPOL [Suspect]
     Indication: IMMUNISATION
     Route: 058
     Dates: start: 20090406
  2. TRIPEDIA [Suspect]
     Indication: IMMUNISATION
     Route: 030
     Dates: start: 20090406
  3. M-M-R II [Suspect]
     Indication: IMMUNISATION
     Route: 058
     Dates: start: 20090406
  4. TUBERSOL [Suspect]
     Indication: TUBERCULIN TEST
     Route: 065
     Dates: start: 20090406
  5. VARICELLA [Suspect]
     Indication: IMMUNISATION
     Route: 058
     Dates: start: 20090406

REACTIONS (4)
  - COUGH [None]
  - HYPERSENSITIVITY [None]
  - URTICARIA [None]
  - WHEEZING [None]
